FAERS Safety Report 9606744 (Version 1)
Quarter: 2013Q4

REPORT INFORMATION
  Report Type: Spontaneous
  Country: US (occurrence: US)
  Receive Date: 20131008
  Receipt Date: 20131008
  Transmission Date: 20140711
  Serious: No
  Sender: FDA-Public Use
  Company Number: US-AMGEN-USASP2013062167

PATIENT
  Age: 73 Year
  Sex: Female

DRUGS (6)
  1. PROLIA [Suspect]
     Indication: PRODUCT USED FOR UNKNOWN INDICATION
     Dosage: UNK
     Route: 065
     Dates: start: 201308
  2. LOMOTIL                            /00034001/ [Concomitant]
     Dosage: UNK UNK, QID
  3. WELCHOL [Concomitant]
     Dosage: UNK UNK, QID
  4. SYNTHROID [Concomitant]
  5. LISINOPRIL [Concomitant]
  6. MULTIVITAMIN FOR WOMEN [Concomitant]
     Dosage: UNK UNK, QOD

REACTIONS (3)
  - Diabetic foot [Unknown]
  - Limb discomfort [Recovered/Resolved]
  - Bone disorder [Recovered/Resolved]
